FAERS Safety Report 15815161 (Version 3)
Quarter: 2019Q1

REPORT INFORMATION
  Report Type: Spontaneous
  Country: GB (occurrence: GB)
  Receive Date: 20190112
  Receipt Date: 20190219
  Transmission Date: 20190417
  Serious: Yes (Other)
  Sender: FDA-Public Use
  Company Number: GB-ACCORD-101347

PATIENT
  Age: 38 Year
  Sex: Male

DRUGS (7)
  1. RIBAVIRIN. [Suspect]
     Active Substance: RIBAVIRIN
     Indication: CHRONIC HEPATITIS
     Dosage: 400 MG, BID
     Route: 048
     Dates: start: 201408, end: 2014
  2. PREDNISOLONE. [Suspect]
     Active Substance: PREDNISOLONE
     Indication: HEPATITIS E
     Dosage: 10 MG, QD
  3. RIBAVIRIN. [Suspect]
     Active Substance: RIBAVIRIN
     Indication: CHRONIC HEPATITIS
     Dosage: 1000 MG, QD; ALSO TAKEN 400 MG QD FROM FEB-2015 TO MAR-2015 AND FROM AUG-2014 TO 2014
     Route: 048
     Dates: start: 201411
  4. TACROLIMUS. [Suspect]
     Active Substance: TACROLIMUS
     Indication: IMMUNOSUPPRESSION
     Dosage: ALSO RECEIVED FOR KIDNEY TRANSPLANT
     Route: 048
  5. RIBAVIRIN. [Suspect]
     Active Substance: RIBAVIRIN
     Indication: PRODUCT USED FOR UNKNOWN INDICATION
     Dosage: 400 MG, BID
     Route: 048
     Dates: start: 201502, end: 201503
  6. PREDNISOLONE. [Suspect]
     Active Substance: PREDNISOLONE
     Indication: IMMUNOSUPPRESSION
     Dosage: 7.5 MG, QD; ALSO RECEIVED 10 MG QD FOR KIDNEY TRANSPLANT
  7. ERYTHROPOIETIN HUMAN [Concomitant]
     Active Substance: ERYTHROPOIETIN
     Indication: ANAEMIA
     Dosage: UNK
     Route: 042

REACTIONS (5)
  - Hepatitis E [Recovered/Resolved]
  - Chronic hepatitis [Recovered/Resolved]
  - Haemoglobin decreased [Unknown]
  - Anaemia [Unknown]
  - Transaminases increased [Recovered/Resolved]

NARRATIVE: CASE EVENT DATE: 201502
